FAERS Safety Report 9805345 (Version 1)
Quarter: 2014Q1

REPORT INFORMATION
  Report Type: Spontaneous
  Country: US (occurrence: None)
  Receive Date: 20140108
  Receipt Date: 20140108
  Transmission Date: 20141002
  Serious: Yes (Life-Threatening)
  Sender: FDA-Public Use
  Company Number: None

PATIENT
  Age: 42 Year
  Sex: Female
  Weight: 49.9 kg

DRUGS (4)
  1. PLENDIL [Suspect]
     Indication: HYPERTENSION
     Dosage: WITH 8 OZ WATER
     Dates: start: 19950727
  2. CARTIA [Concomitant]
  3. AZOR [Concomitant]
  4. MULTIVITAMINS ADULT GUMMY [Concomitant]

REACTIONS (8)
  - Swelling face [None]
  - Lip swelling [None]
  - Eye swelling [None]
  - Migraine [None]
  - Dyspnoea [None]
  - Fall [None]
  - Nasal oedema [None]
  - Throat tightness [None]
